FAERS Safety Report 9345244 (Version 1)
Quarter: 2013Q2

REPORT INFORMATION
  Report Type: Spontaneous
  Country: DE (occurrence: DE)
  Receive Date: 20130612
  Receipt Date: 20130612
  Transmission Date: 20140414
  Serious: Yes (Other)
  Sender: FDA-Public Use
  Company Number: DE-ELI_LILLY_AND_COMPANY-DE201306000717

PATIENT
  Age: 64 Year
  Sex: Female

DRUGS (3)
  1. FORSTEO [Suspect]
     Indication: OSTEOPOROSIS
     Dosage: UNK, QD
     Route: 058
     Dates: start: 20111213
  2. MARCUMAR [Concomitant]
  3. VITAMIN D NOS [Concomitant]

REACTIONS (3)
  - Sudden hearing loss [Recovering/Resolving]
  - Tinnitus [Not Recovered/Not Resolved]
  - Otitis media [Not Recovered/Not Resolved]
